FAERS Safety Report 12404256 (Version 1)
Quarter: 2016Q2

REPORT INFORMATION
  Report Type: Spontaneous
  Country: CH (occurrence: FR)
  Receive Date: 20160525
  Receipt Date: 20160525
  Transmission Date: 20160815
  Serious: Yes (Hospitalization)
  Sender: FDA-Public Use
  Company Number: CH-LPDUSPRD-20160444

PATIENT
  Age: 48 Year
  Sex: Female

DRUGS (11)
  1. VENTOLINE [Concomitant]
     Active Substance: ALBUTEROL
     Dosage: AS REQUIRED
     Route: 065
  2. SPIRIVA [Concomitant]
     Active Substance: TIOTROPIUM BROMIDE MONOHYDRATE
     Dosage: 3 PUFFS IN THE PM
     Route: 065
  3. STILNOX [Concomitant]
     Active Substance: ZOLPIDEM TARTRATE
     Dosage: DOSE NOT PROVIDED
     Route: 065
  4. XANAX [Concomitant]
     Active Substance: ALPRAZOLAM
     Dosage: DOSE NOT PROVIDED
     Route: 065
  5. SKENAN [Concomitant]
     Active Substance: MORPHINE SULFATE
     Dosage: 120MG IN AM AND PM
     Route: 065
  6. ACTISKENAN [Concomitant]
     Active Substance: MORPHINE SULFATE
     Dosage: DOSE NOT PROVIDED
     Route: 065
  7. VIRLIX [Concomitant]
     Active Substance: CETIRIZINE HYDROCHLORIDE
     Dosage: 1 DOSE IN 1 DAY
     Route: 065
  8. SYMBICORT [Concomitant]
     Active Substance: BUDESONIDE\FORMOTEROL FUMARATE DIHYDRATE
     Dosage: 400MG, 3 DOSES IN AM AND PM
     Route: 065
  9. SEROPLEX [Concomitant]
     Active Substance: ESCITALOPRAM OXALATE
     Dosage: DOSE NOT PROVIDED
     Route: 065
  10. VENOFER [Suspect]
     Active Substance: IRON SUCROSE
     Dosage: 300 MG
     Route: 041
     Dates: start: 20160422, end: 2016
  11. SOLUPRED [Concomitant]
     Active Substance: PREDNISOLONE
     Dosage: 20 MG DAILY
     Route: 065

REACTIONS (4)
  - Hot flush [Unknown]
  - Hyperhidrosis [Recovered/Resolved]
  - Asthma [Recovered/Resolved]
  - Erythema [Recovered/Resolved]

NARRATIVE: CASE EVENT DATE: 20160422
